FAERS Safety Report 4832146-8 (Version None)
Quarter: 2005Q4

REPORT INFORMATION
  Report Type: 
  Country: None (occurrence: None)
  Receive Date: 20051118
  Receipt Date: 20051110
  Transmission Date: 20060501
  Serious: Yes (Life-Threatening, Hospitalization)
  Sender: FDA-Public Use
  Company Number: FR-MERCK-0511FRA00032

PATIENT
  Age: 83 Year
  Sex: Female

DRUGS (6)
  1. FOSAMAX [Suspect]
     Indication: OSTEOPOROSIS
     Route: 048
     Dates: start: 20050201, end: 20050927
  2. FOSAMAX [Suspect]
     Route: 048
     Dates: start: 20051007
  3. ASPIRIN [Suspect]
     Indication: TRANSIENT ISCHAEMIC ATTACK
     Route: 048
     Dates: start: 19950101, end: 20050927
  4. FLUOXETINE HYDROCHLORIDE [Suspect]
     Indication: DEPRESSION
     Route: 048
     Dates: start: 20050906, end: 20050927
  5. CLONAZEPAM [Concomitant]
     Route: 048
  6. CALCIUM CARBONATE [Concomitant]
     Indication: OSTEOPOROSIS
     Route: 048

REACTIONS (6)
  - ANAEMIA [None]
  - DIVERTICULUM [None]
  - GASTRITIS [None]
  - GASTROINTESTINAL HAEMORRHAGE [None]
  - HIATUS HERNIA [None]
  - MICROCYTIC ANAEMIA [None]
